FAERS Safety Report 4903429-8 (Version None)
Quarter: 2006Q1

REPORT INFORMATION
  Report Type: 
  Country: None (occurrence: None)
  Receive Date: 20060203
  Receipt Date: 20060123
  Transmission Date: 20060701
  Serious: Yes (Hospitalization)
  Sender: FDA-Public Use
  Company Number: 2006005602

PATIENT
  Age: 43 Year
  Sex: Male

DRUGS (1)
  1. UNASYN [Suspect]
     Indication: INJURY
     Dosage: 2.25 GRAM (750 MG, 1 IN 8 HR), INTRAVENOUS
     Route: 042

REACTIONS (1)
  - PNEUMONIA [None]
